FAERS Safety Report 20089192 (Version 2)
Quarter: 2022Q1

REPORT INFORMATION
  Report Type: Spontaneous
  Country: US (occurrence: US)
  Receive Date: 20211119
  Receipt Date: 20220131
  Transmission Date: 20220423
  Serious: No
  Sender: FDA-Public Use
  Company Number: US-DECIPHERA PHARMACEUTICALS LLC-2021US001016

PATIENT
  Sex: Male

DRUGS (2)
  1. QINLOCK [Suspect]
     Active Substance: RIPRETINIB
     Indication: Gastrointestinal stromal tumour
     Dosage: 150 MILLIGRAM, QD
     Route: 048
     Dates: start: 20211009
  2. QINLOCK [Suspect]
     Active Substance: RIPRETINIB
     Dosage: 50 MILLIGRAM, QD
     Route: 048

REACTIONS (8)
  - Peripheral swelling [Recovering/Resolving]
  - Bone pain [Unknown]
  - Asthenia [Unknown]
  - Fatigue [Recovering/Resolving]
  - Weight decreased [Recovering/Resolving]
  - Arthralgia [Unknown]
  - Hypertension [Unknown]
  - Underdose [Unknown]

NARRATIVE: CASE EVENT DATE: 20210101
